FAERS Safety Report 17444958 (Version 1)
Quarter: 2020Q1

REPORT INFORMATION
  Report Type: Spontaneous
  Country: US (occurrence: US)
  Receive Date: 20200221
  Receipt Date: 20200221
  Transmission Date: 20200409
  Serious: Yes (Other)
  Sender: FDA-Public Use
  Company Number: US-GW PHARMA-202002USGW00581

PATIENT

DRUGS (3)
  1. DEPAKOTE [Suspect]
     Active Substance: DIVALPROEX SODIUM
     Indication: PRODUCT USED FOR UNKNOWN INDICATION
     Dosage: UNK
     Route: 065
  2. EPIDIOLEX [Suspect]
     Active Substance: CANNABIDIOL
     Dosage: 360 MILLIGRAM, BID (INCREASED DOSE)
     Route: 048
  3. EPIDIOLEX [Suspect]
     Active Substance: CANNABIDIOL
     Indication: LENNOX-GASTAUT SYNDROME
     Dosage: 240 MILLIGRAM, BID
     Route: 048
     Dates: start: 201910

REACTIONS (14)
  - Hallucination, auditory [Unknown]
  - Confusional state [Unknown]
  - Anticonvulsant drug level increased [Unknown]
  - Decreased appetite [Unknown]
  - Product complaint [Unknown]
  - Dizziness [Unknown]
  - Diplopia [Unknown]
  - Diarrhoea [Unknown]
  - Depression suicidal [Unknown]
  - Tremor [Unknown]
  - Agitation [Unknown]
  - Anger [Unknown]
  - Defiant behaviour [Unknown]
  - Fatigue [Unknown]

NARRATIVE: CASE EVENT DATE: 2020
